FAERS Safety Report 23493663 (Version 1)
Quarter: 2024Q1

REPORT INFORMATION
  Report Type: Spontaneous
  Country: US (occurrence: US)
  Receive Date: 20240207
  Receipt Date: 20240207
  Transmission Date: 20240410
  Serious: No
  Sender: FDA-Public Use
  Company Number: US-SA-SAC20240201000045

PATIENT
  Age: 27 Year
  Sex: Female

DRUGS (2)
  1. DUPIXENT [Suspect]
     Active Substance: DUPILUMAB
     Indication: Dermatitis atopic
     Dosage: 300 MG, QOW
     Route: 058
  2. NUVARING [Suspect]
     Active Substance: ETHINYL ESTRADIOL\ETONOGESTREL
     Dosage: UNK
     Dates: start: 2023

REACTIONS (10)
  - Sleep disorder due to a general medical condition [Recovering/Resolving]
  - Dermatitis atopic [Unknown]
  - Pruritus [Unknown]
  - Skin haemorrhage [Unknown]
  - Dry skin [Unknown]
  - Skin exfoliation [Unknown]
  - Rash [Unknown]
  - Injection site pain [Unknown]
  - Contraception [Unknown]
  - Inappropriate schedule of product administration [Unknown]
